FAERS Safety Report 25240494 (Version 1)
Quarter: 2025Q2

REPORT INFORMATION
  Report Type: Spontaneous
  Country: PT (occurrence: PT)
  Receive Date: 20250425
  Receipt Date: 20250425
  Transmission Date: 20250717
  Serious: Yes (Disabling)
  Sender: GILEAD
  Company Number: PT-GILEAD-2025-0710502

PATIENT
  Sex: Female

DRUGS (5)
  1. BIKTARVY [Suspect]
     Active Substance: BICTEGRAVIR SODIUM\EMTRICITABINE\TENOFOVIR ALAFENAMIDE FUMARATE
     Indication: Product used for unknown indication
     Route: 065
  2. TENOFOVIR ALAFENAMIDE FUMARATE [Concomitant]
     Active Substance: TENOFOVIR ALAFENAMIDE FUMARATE
     Dates: start: 202501
  3. EMTRICITABINE [Concomitant]
     Active Substance: EMTRICITABINE
     Dates: start: 202501
  4. DARUNAVIR [Concomitant]
     Active Substance: DARUNAVIR
     Dates: start: 202501
  5. RILPIVIRINE [Concomitant]
     Active Substance: RILPIVIRINE
     Dates: start: 202501

REACTIONS (1)
  - Drug resistance [Not Recovered/Not Resolved]

NARRATIVE: CASE EVENT DATE: 20241130
